FAERS Safety Report 20414163 (Version 1)
Quarter: 2022Q1

REPORT INFORMATION
  Report Type: Report from Study
  Country: CD (occurrence: CD)
  Receive Date: 20220201
  Receipt Date: 20220201
  Transmission Date: 20220423
  Serious: Yes (Death, Life-Threatening)
  Sender: FDA-Public Use
  Company Number: CD-REGENERON PHARMACEUTICALS, INC.-2020-31432

PATIENT

DRUGS (5)
  1. ATOLTIVIMAB\MAFTIVIMAB\ODESIVIMAB-EBGN [Suspect]
     Active Substance: ATOLTIVIMAB\MAFTIVIMAB\ODESIVIMAB-EBGN
     Indication: Ebola disease
     Dosage: 150MG/KG, SINGLE
     Route: 042
     Dates: start: 20190829, end: 20190829
  2. EPINEPHRINE [Concomitant]
     Active Substance: EPINEPHRINE
     Indication: Product used for unknown indication
  3. RINGER LACTATE                     /00467901/ [Concomitant]
     Indication: Product used for unknown indication
  4. DEXTROSE [Concomitant]
     Active Substance: DEXTROSE
     Indication: Product used for unknown indication
  5. PHENOBARBITAL [Concomitant]
     Active Substance: PHENOBARBITAL
     Indication: Product used for unknown indication

REACTIONS (1)
  - Seizure [Fatal]

NARRATIVE: CASE EVENT DATE: 20190829
